FAERS Safety Report 9869185 (Version 2)
Quarter: 2014Q1

REPORT INFORMATION
  Report Type: Spontaneous
  Country: AR (occurrence: AR)
  Receive Date: 20140205
  Receipt Date: 20140210
  Transmission Date: 20141002
  Serious: No
  Sender: FDA-Public Use
  Company Number: AR-AMGEN-ARGSP2014007797

PATIENT
  Age: 59 Year
  Sex: Female

DRUGS (9)
  1. ENBREL [Suspect]
     Indication: RHEUMATOID ARTHRITIS
     Dosage: 50 MG, WEEKLY
     Route: 065
     Dates: start: 20120524, end: 20140109
  2. METFORMIN [Concomitant]
     Indication: DIABETES MELLITUS
     Dosage: 850 MG, 2X/DAY
     Route: 048
  3. LOSARTAN [Concomitant]
     Dosage: 50 MG, 1X/DAY
     Route: 048
  4. MODURETIC [Concomitant]
     Dosage: 50 MG, 1X/DAY
     Route: 048
  5. FOLIC ACID [Concomitant]
     Dosage: UNK
     Route: 048
  6. PREGABALIN [Concomitant]
     Dosage: UNK
  7. ARCOXIA [Concomitant]
     Dosage: UNK
  8. VALIUM [Concomitant]
     Dosage: UNK
  9. FLUOXETINE HYDROCHLORIDE [Concomitant]
     Dosage: UNK

REACTIONS (1)
  - Osteoarthritis [Recovering/Resolving]
